FAERS Safety Report 9889047 (Version 2)
Quarter: 2014Q1

REPORT INFORMATION
  Report Type: Spontaneous
  Country: FR (occurrence: FR)
  Receive Date: 20140211
  Receipt Date: 20140319
  Transmission Date: 20141002
  Serious: Yes (Hospitalization, Other)
  Sender: FDA-Public Use
  Company Number: FR-UCBSA-111596

PATIENT
  Age: 49 Year
  Sex: Female

DRUGS (16)
  1. KEPPRA [Suspect]
     Indication: STATUS EPILEPTICUS
     Route: 048
     Dates: start: 20131221, end: 20131223
  2. KEPPRA [Suspect]
     Indication: STATUS EPILEPTICUS
     Route: 048
     Dates: start: 20131220, end: 20131220
  3. KEPPRA [Suspect]
     Indication: STATUS EPILEPTICUS
     Route: 048
     Dates: start: 20131219, end: 20131219
  4. KEPPRA [Suspect]
     Indication: STATUS EPILEPTICUS
     Route: 048
     Dates: start: 20131213, end: 20131218
  5. KEPPRA [Suspect]
     Indication: STATUS EPILEPTICUS
     Route: 048
     Dates: start: 20131206, end: 20131212
  6. KEPPRA [Suspect]
     Indication: STATUS EPILEPTICUS
     Route: 048
     Dates: start: 20131204, end: 20131205
  7. XANAN [Suspect]
     Dosage: BENZODIAZEPINES DOSES WERE INCREASED
     Route: 048
     Dates: start: 201312, end: 20131213
  8. XANAN [Suspect]
     Route: 048
     Dates: end: 201312
  9. SEROPLEX [Suspect]
     Route: 048
     Dates: end: 20131213
  10. TRANXENE [Suspect]
     Dosage: BENZODIAZEPINES DOSES WERE INCREASED
     Route: 048
     Dates: start: 201312, end: 20131213
  11. TRANXENE [Suspect]
     Route: 048
     Dates: end: 201312
  12. TEMERIT [Concomitant]
     Dosage: 5 MG
  13. LOXEN [Concomitant]
     Dosage: 50 MG
  14. DIFFU-K [Concomitant]
  15. PRODILANTIN [Concomitant]
  16. URBANYL [Concomitant]
     Dates: start: 201312

REACTIONS (5)
  - Hallucination, visual [Recovered/Resolved]
  - Confusional state [Recovered/Resolved]
  - Delirium [Recovered/Resolved]
  - Agitation [Recovered/Resolved]
  - Disorientation [Recovered/Resolved]
